FAERS Safety Report 15492155 (Version 1)
Quarter: 2018Q4

REPORT INFORMATION
  Report Type: Spontaneous
  Country: US (occurrence: US)
  Receive Date: 20181011
  Receipt Date: 20181011
  Transmission Date: 20190205
  Serious: No
  Sender: FDA-Public Use
  Company Number: None

PATIENT
  Age: 64 Year
  Sex: Female
  Weight: 81 kg

DRUGS (9)
  1. ISOSORBID [Concomitant]
  2. PROBIOTIC [Concomitant]
     Active Substance: PROBIOTICS NOS
  3. ASA [Concomitant]
     Active Substance: ASPIRIN
  4. PRESERVISION AREDS 2 [Concomitant]
     Active Substance: MINERALS\VITAMINS
  5. HCTZ [Concomitant]
     Active Substance: HYDROCHLOROTHIAZIDE
  6. PRALUENT [Concomitant]
     Active Substance: ALIROCUMAB
  7. MAGNESIUM [Concomitant]
     Active Substance: MAGNESIUM
  8. CALCIUM [Concomitant]
     Active Substance: CALCIUM
  9. RANEXA [Suspect]
     Active Substance: RANOLAZINE
     Indication: ANGINA PECTORIS
     Dosage: ?          QUANTITY:1 TABLET(S);?
     Route: 048
     Dates: start: 20150101, end: 20180101

REACTIONS (6)
  - Muscle swelling [None]
  - Insomnia [None]
  - Gait disturbance [None]
  - Muscle rigidity [None]
  - Pain [None]
  - Burning sensation [None]

NARRATIVE: CASE EVENT DATE: 20160208
